FAERS Safety Report 20631908 (Version 2)
Quarter: 2022Q1

REPORT INFORMATION
  Report Type: Spontaneous
  Country: US (occurrence: None)
  Receive Date: 20220324
  Receipt Date: 20220328
  Transmission Date: 20220423
  Serious: Yes (Death, Life-Threatening, Other)
  Sender: FDA-Public Use
  Company Number: 2022A122336

PATIENT
  Age: 22821 Day
  Sex: Male
  Weight: 77.1 kg

DRUGS (1)
  1. EVUSHELD [Suspect]
     Active Substance: CILGAVIMAB\TIXAGEVIMAB
     Indication: COVID-19 prophylaxis
     Dosage: 150 MG/150 MG150.0MG ONCE/SINGLE ADMINISTRATION
     Route: 030
     Dates: start: 20220223, end: 20220223

REACTIONS (1)
  - Death [Fatal]

NARRATIVE: CASE EVENT DATE: 20220227
